FAERS Safety Report 8350897 (Version 2)
Quarter: 2012Q4

REPORT INFORMATION
  Report Type: Report from Study
  Country: JP (occurrence: JP)
  Receive Date: 20120124
  Receipt Date: 20120925
  Transmission Date: 20130627
  Serious: Yes (Hospitalization)
  Sender: FDA-Public Use
  Company Number: JP-NOVOPROD-343066

PATIENT
  Age: 68 Year
  Sex: Male
  Weight: 90 kg

DRUGS (9)
  1. LIRAGLUTIDE FLEXPEN [Suspect]
     Indication: TYPE 2 DIABETES MELLITUS
     Dosage: 0.3 mg, qd
     Route: 058
     Dates: start: 20111215
  2. LIRAGLUTIDE FLEXPEN [Suspect]
     Dosage: 0.6 mg, qd
     Route: 058
     Dates: start: 20111216
  3. LIRAGLUTIDE FLEXPEN [Suspect]
     Dosage: 0.9 mg, qd
     Route: 058
     Dates: start: 20111220, end: 20120109
  4. LIRAGLUTIDE FLEXPEN [Suspect]
     Dosage: 0.9 mg, qd (evening)
     Route: 058
     Dates: start: 20120221
  5. AMLODIPINE                         /00972402/ [Concomitant]
     Route: 048
  6. CRESTOR [Concomitant]
     Route: 048
  7. DIOVAN [Concomitant]
     Route: 048
  8. PLETAAL [Concomitant]
     Route: 048
  9. BLOSTAR M [Concomitant]
     Dosage: UNK
     Route: 048
     Dates: end: 20120302

REACTIONS (1)
  - Cholecystitis acute [Recovered/Resolved]
